FAERS Safety Report 12752915 (Version 2)
Quarter: 2017Q3

REPORT INFORMATION
  Report Type: Spontaneous
  Country: US (occurrence: US)
  Receive Date: 20160915
  Receipt Date: 20170914
  Transmission Date: 20171127
  Serious: No
  Sender: FDA-Public Use
  Company Number: US-ASTELLAS-2015US038473

PATIENT
  Age: 89 Year
  Sex: Male

DRUGS (3)
  1. XTANDI [Suspect]
     Active Substance: ENZALUTAMIDE
     Indication: PROSTATE CANCER
     Route: 048
     Dates: start: 20150722
  2. XTANDI [Suspect]
     Active Substance: ENZALUTAMIDE
     Indication: CEREBRAL INFARCTION
  3. XTANDI [Suspect]
     Active Substance: ENZALUTAMIDE
     Indication: CEREBRAL ARTERY OCCLUSION

REACTIONS (3)
  - Off label use [Unknown]
  - Jaw disorder [Unknown]
  - Diarrhoea [Recovering/Resolving]

NARRATIVE: CASE EVENT DATE: 20170210
